FAERS Safety Report 10073383 (Version 1)
Quarter: 2014Q2

REPORT INFORMATION
  Report Type: Spontaneous
  Country: DE (occurrence: DE)
  Receive Date: 20140411
  Receipt Date: 20140411
  Transmission Date: 20141212
  Serious: Yes (Life-Threatening, Hospitalization)
  Sender: FDA-Public Use
  Company Number: DE-TEVA-473570GER

PATIENT
  Age: 0 Day
  Sex: Male
  Weight: 3.1 kg

DRUGS (3)
  1. CITALOPRAM [Suspect]
     Route: 064
  2. KEPPRA [Suspect]
     Route: 064
  3. L-THYROXIN [Concomitant]
     Route: 064

REACTIONS (1)
  - Persistent foetal circulation [Recovered/Resolved]
